FAERS Safety Report 16664680 (Version 1)
Quarter: 2019Q3

REPORT INFORMATION
  Report Type: Spontaneous
  Country: GB (occurrence: GB)
  Receive Date: 20190803
  Receipt Date: 20190803
  Transmission Date: 20191004
  Serious: Yes (Other)
  Sender: FDA-Public Use
  Company Number: GB-HETERO-HET2019GB01012

PATIENT
  Age: 12 Year
  Sex: Female

DRUGS (5)
  1. ARIPIPRAZOLE. [Suspect]
     Active Substance: ARIPIPRAZOLE
     Indication: PSYCHOTIC DISORDER
     Dosage: 300 MG
     Route: 030
  2. CARBAMAZEPINE. [Interacting]
     Active Substance: CARBAMAZEPINE
     Indication: EPILEPSY
     Dosage: 500 MG, BID
     Route: 065
  3. OXCARBAZEPINE. [Suspect]
     Active Substance: OXCARBAZEPINE
     Indication: EPILEPSY
     Dosage: UNK
     Route: 048
  4. ARIPIPRAZOLE. [Suspect]
     Active Substance: ARIPIPRAZOLE
     Indication: PSYCHOTIC DISORDER
     Dosage: 5 MG
     Route: 048
  5. ARIPIPRAZOLE. [Interacting]
     Active Substance: ARIPIPRAZOLE
     Dosage: 15 MG, QD
     Route: 048

REACTIONS (4)
  - Contraindicated product administered [Unknown]
  - Petit mal epilepsy [Unknown]
  - Drug interaction [Unknown]
  - Off label use [Unknown]
